FAERS Safety Report 4896938-1 (Version None)
Quarter: 2006Q1

REPORT INFORMATION
  Report Type: 
  Country: None (occurrence: None)
  Receive Date: 20060127
  Receipt Date: 20060106
  Transmission Date: 20060701
  Serious: Yes (Hospitalization)
  Sender: FDA-Public Use
  Company Number: CH200601000978

PATIENT
  Age: 20 Year
  Sex: Male
  Weight: 96 kg

DRUGS (2)
  1. ZYPREXA [Suspect]
     Indication: SCHIZOPHRENIA
     Dosage: UNK. ORAL
     Route: 048
     Dates: end: 20041101
  2. QUETIAPINE FUMARATE [Concomitant]

REACTIONS (3)
  - FACTOR II MUTATION [None]
  - PULMONARY EMBOLISM [None]
  - WEIGHT INCREASED [None]
